FAERS Safety Report 11312102 (Version 1)
Quarter: 2015Q3

REPORT INFORMATION
  Report Type: Spontaneous
  Country: US (occurrence: None)
  Receive Date: 20150724
  Receipt Date: 20150724
  Transmission Date: 20151125
  Serious: Yes (Hospitalization)
  Sender: FDA-Public Use
  Company Number: None

PATIENT
  Age: 57 Year
  Sex: Female
  Weight: 64 kg

DRUGS (2)
  1. TAXOL [Suspect]
     Active Substance: PACLITAXEL
     Dates: end: 20150416
  2. CARBOPLATIN. [Suspect]
     Active Substance: CARBOPLATIN
     Dates: end: 20150416

REACTIONS (6)
  - Pelvic infection [None]
  - Malaise [None]
  - Pyrexia [None]
  - Loss of consciousness [None]
  - Anaemia [None]
  - Dehydration [None]

NARRATIVE: CASE EVENT DATE: 20150511
